FAERS Safety Report 21463886 (Version 3)
Quarter: 2022Q4

REPORT INFORMATION
  Report Type: Spontaneous
  Country: US (occurrence: US)
  Receive Date: 20221017
  Receipt Date: 20221105
  Transmission Date: 20230112
  Serious: Yes (Hospitalization, Other)
  Sender: FDA-Public Use
  Company Number: US-MLMSERVICE-20220930-3832684-1

PATIENT
  Age: 72 Year
  Sex: Male

DRUGS (3)
  1. VALACYCLOVIR HYDROCHLORIDE [Suspect]
     Active Substance: VALACYCLOVIR HYDROCHLORIDE
     Indication: Herpes zoster
     Dosage: 1 GRAM, 3 TIMES A DAY (PRESCRIBED VALACYCLOVIR AT SIX-TIMES THE RECOMMENDED DOSE)
     Route: 065
  2. VALACYCLOVIR HYDROCHLORIDE [Suspect]
     Active Substance: VALACYCLOVIR HYDROCHLORIDE
     Dosage: 500 MILLIGRAM, (500MG DAILY COMPARED TO 1G 3 TIMES A DAY; DRUG OVERDOSE AND MEDICATION ERROR)
     Route: 065
  3. TRAMADOL [Suspect]
     Active Substance: TRAMADOL
     Indication: Pain
     Dosage: 50 MILLIGRAM, 3 TIMES A DAY (AS NEEDED)
     Route: 065

REACTIONS (2)
  - Neurotoxicity [Recovering/Resolving]
  - Incorrect dose administered [Recovered/Resolved]
